FAERS Safety Report 20249195 (Version 2)
Quarter: 2022Q1

REPORT INFORMATION
  Report Type: Spontaneous
  Country: US (occurrence: US)
  Receive Date: 20211229
  Receipt Date: 20220107
  Transmission Date: 20220423
  Serious: Yes (Hospitalization, Other)
  Sender: FDA-Public Use
  Company Number: US-PROCTER_AND_GAMBLE-GS21118015

PATIENT
  Age: 23 Year
  Sex: Male

DRUGS (3)
  1. ALCOHOL [Suspect]
     Active Substance: ALCOHOL
     Route: 061
  2. red food coloring [Concomitant]
  3. FLUOXETINE [Concomitant]
     Active Substance: FLUOXETINE HYDROCHLORIDE

REACTIONS (23)
  - Thermal burn [Unknown]
  - Application site burn [Unknown]
  - Joint range of motion decreased [Recovering/Resolving]
  - Scar [Unknown]
  - Hypertrophic scar [Unknown]
  - Heart rate increased [Unknown]
  - Bladder disorder [Unknown]
  - Burn infection [Unknown]
  - Purulent discharge [Unknown]
  - Skin disorder [Unknown]
  - Haematocrit decreased [Unknown]
  - White blood cell count increased [Unknown]
  - Blood albumin decreased [Unknown]
  - Blood phosphorus decreased [Unknown]
  - Aspartate aminotransferase increased [Unknown]
  - Urinary tract infection [Unknown]
  - Pseudomonas test positive [Unknown]
  - Peripheral motor neuropathy [Unknown]
  - Peripheral sensory neuropathy [Unknown]
  - Pruritus [Unknown]
  - Wound [Unknown]
  - Skin scar contracture [Unknown]
  - Intentional product use issue [Unknown]
